FAERS Safety Report 7447664-6 (Version None)
Quarter: 2011Q2

REPORT INFORMATION
  Report Type: 
  Country: None (occurrence: None)
  Receive Date: 20110429
  Receipt Date: 20110110
  Transmission Date: 20111010
  Serious: No
  Sender: FDA-Public Use
  Company Number: US-ASTRAZENECA-2011SE01430

PATIENT
  Age: 66 Year
  Sex: Male

DRUGS (2)
  1. UNSPECIFIED DRUG [Interacting]
  2. NEXIUM [Suspect]
     Route: 048

REACTIONS (1)
  - DRUG INTERACTION [None]
